FAERS Safety Report 14760401 (Version 1)
Quarter: 2018Q2

REPORT INFORMATION
  Report Type: Report from Study
  Country: None (occurrence: AU)
  Receive Date: 20180414
  Receipt Date: 20180414
  Transmission Date: 20180711
  Serious: Yes (Other)
  Sender: FDA-Public Use
  Company Number: AU-ABBVIE-18K-008-2312590-00

PATIENT
  Age: 77 Year
  Sex: Female

DRUGS (2)
  1. PALEXIA [Suspect]
     Active Substance: TAPENTADOL HYDROCHLORIDE
     Indication: PAIN MANAGEMENT
     Route: 065
  2. HUMIRA [Suspect]
     Active Substance: ADALIMUMAB
     Indication: ANKYLOSING SPONDYLITIS
     Route: 058

REACTIONS (20)
  - Surgery [Unknown]
  - Drug intolerance [Unknown]
  - Spinal deformity [Unknown]
  - Pharyngeal disorder [Unknown]
  - Grip strength decreased [Unknown]
  - Chest pain [Not Recovered/Not Resolved]
  - Headache [Unknown]
  - Feeling abnormal [Unknown]
  - Pain [Unknown]
  - Dizziness [Unknown]
  - Pain in extremity [Unknown]
  - Asthenopia [Unknown]
  - Memory impairment [Unknown]
  - Dysphagia [Unknown]
  - Osteoarthritis [Unknown]
  - Head discomfort [Unknown]
  - Disturbance in attention [Unknown]
  - Spinal pain [Not Recovered/Not Resolved]
  - Coccydynia [Unknown]
  - Neck pain [Not Recovered/Not Resolved]

NARRATIVE: CASE EVENT DATE: 201704
